FAERS Safety Report 20947091 (Version 5)
Quarter: 2023Q1

REPORT INFORMATION
  Report Type: Report from Study
  Country: BR (occurrence: BR)
  Receive Date: 20220610
  Receipt Date: 20230220
  Transmission Date: 20230418
  Serious: Yes (Other)
  Sender: FDA-Public Use
  Company Number: BR-JNJFOC-20220405272

PATIENT
  Age: 41 Year
  Sex: Female
  Weight: 98 kg

DRUGS (9)
  1. REMICADE [Suspect]
     Active Substance: INFLIXIMAB
     Indication: Crohn^s disease
     Dosage: TREATMENT START DATE: 17/MAR/2022 (ALSO REPORTED)
     Route: 041
     Dates: start: 20220303
  2. LOSARTAN [Concomitant]
     Active Substance: LOSARTAN
  3. ATENOLOL [Concomitant]
     Active Substance: ATENOLOL
  4. AZATHIOPRINE [Concomitant]
     Active Substance: AZATHIOPRINE
  5. SERTRALINE [Concomitant]
     Active Substance: SERTRALINE HYDROCHLORIDE
     Dosage: 2 IN THE MORNING AND 2 IN THE AFTERNOON
  6. AMITRIPTYLINE [Concomitant]
     Active Substance: AMITRIPTYLINE
  7. RIVOTRIL [Concomitant]
     Active Substance: CLONAZEPAM
  8. HYDROCHLOROTHIAZIDE [Concomitant]
     Active Substance: HYDROCHLOROTHIAZIDE
     Indication: Product used for unknown indication
  9. OMEPRAZOLE [Concomitant]
     Active Substance: OMEPRAZOLE
     Indication: Product used for unknown indication

REACTIONS (15)
  - Seizure [Unknown]
  - Anal fistula [Recovering/Resolving]
  - Crohn^s disease [Unknown]
  - Hepatic steatosis [Unknown]
  - Renal disorder [Unknown]
  - Biliary colic [Not Recovered/Not Resolved]
  - Skin exfoliation [Unknown]
  - Joint injury [Unknown]
  - Weight increased [Unknown]
  - Alopecia [Unknown]
  - Varicella zoster virus infection [Unknown]
  - Anxiety [Unknown]
  - Blood pressure decreased [Recovering/Resolving]
  - Influenza [Unknown]
  - Drug ineffective [Unknown]

NARRATIVE: CASE EVENT DATE: 20220529
